FAERS Safety Report 20582527 (Version 1)
Quarter: 2022Q1

REPORT INFORMATION
  Report Type: Spontaneous
  Country: NL (occurrence: NL)
  Receive Date: 20220311
  Receipt Date: 20220311
  Transmission Date: 20220424
  Serious: Yes (Other)
  Sender: FDA-Public Use
  Company Number: NL-ABBVIE-22K-114-4312020-00

PATIENT
  Age: 36 Month
  Sex: Male
  Weight: 16 kg

DRUGS (1)
  1. VALPROIC ACID [Suspect]
     Active Substance: VALPROIC ACID
     Indication: Epilepsy
     Route: 065
     Dates: start: 20200214

REACTIONS (3)
  - Affect lability [Not Recovered/Not Resolved]
  - Epilepsy [Recovering/Resolving]
  - Aggression [Not Recovered/Not Resolved]

NARRATIVE: CASE EVENT DATE: 20200214
